FAERS Safety Report 7609950-6 (Version None)
Quarter: 2011Q3

REPORT INFORMATION
  Report Type: 
  Country: None (occurrence: None)
  Receive Date: 20110714
  Receipt Date: 20100924
  Transmission Date: 20111222
  Serious: No
  Sender: FDA-Public Use
  Company Number: US-TYCO HEALTHCARE/MALLINCKRODT-T201002047

PATIENT

DRUGS (2)
  1. OXYCODONE HCL [Suspect]
     Dosage: 2.5 MG, QD
  2. OXYCODONE HCL [Suspect]
     Dosage: 5 MG, QD
     Dates: end: 20070101

REACTIONS (3)
  - DYSSTASIA [None]
  - HEADACHE [None]
  - DIZZINESS [None]
